FAERS Safety Report 9498413 (Version 2)
Quarter: 2013Q4

REPORT INFORMATION
  Report Type: Spontaneous
  Country: GB (occurrence: GB)
  Receive Date: 20130904
  Receipt Date: 20131204
  Transmission Date: 20140711
  Serious: Yes (Life-Threatening, Hospitalization)
  Sender: FDA-Public Use
  Company Number: GB-WATSON-2013-15450

PATIENT
  Age: 69 Year
  Sex: Female

DRUGS (6)
  1. CITALOPRAM (UNKNOWN) [Suspect]
     Indication: DEPRESSION
     Dosage: 10 MG, DAILY
     Route: 048
     Dates: start: 20130301, end: 201304
  2. CITALOPRAM (UNKNOWN) [Suspect]
     Dosage: 20 MG, DAILY
     Route: 048
     Dates: start: 201304, end: 201305
  3. CITALOPRAM (UNKNOWN) [Suspect]
     Dosage: 30 MG, DAILY
     Route: 048
     Dates: start: 201305, end: 201305
  4. CITALOPRAM (UNKNOWN) [Suspect]
     Dosage: 20 MG, DAILY
     Route: 048
     Dates: start: 201305, end: 20130731
  5. OMEPRAZOLE [Concomitant]
     Indication: PRODUCT USED FOR UNKNOWN INDICATION
     Dosage: UNK
     Route: 048
  6. ACICLOVIR [Concomitant]
     Indication: PRODUCT USED FOR UNKNOWN INDICATION
     Dosage: UNK, LONG TERM THERAPY
     Route: 048

REACTIONS (3)
  - Stevens-Johnson syndrome [Recovering/Resolving]
  - Erythema multiforme [Recovering/Resolving]
  - Malaise [Unknown]
